FAERS Safety Report 12634216 (Version 2)
Quarter: 2016Q3

REPORT INFORMATION
  Report Type: Spontaneous
  Country: FR (occurrence: FR)
  Receive Date: 20160809
  Receipt Date: 20160830
  Transmission Date: 20161109
  Serious: Yes (Hospitalization)
  Sender: FDA-Public Use
  Company Number: FR-PFIZER INC-2016371574

PATIENT
  Age: 65 Year
  Sex: Female

DRUGS (9)
  1. TAZOCILLINE [Concomitant]
     Active Substance: PIPERACILLIN SODIUM\TAZOBACTAM SODIUM
     Dosage: UNK
     Dates: start: 20160717, end: 20160719
  2. PARKINANE [Concomitant]
     Active Substance: TRIHEXYPHENIDYL HYDROCHLORIDE
  3. ZYPREXA [Concomitant]
     Active Substance: OLANZAPINE
  4. DEPAKINE CHRONO [Concomitant]
     Active Substance: VALPROATE SODIUM
  5. BACTRIM [Suspect]
     Active Substance: SULFAMETHOXAZOLE\TRIMETHOPRIM
     Dosage: 1 DF, 3X/DAY
     Route: 048
     Dates: start: 20160719, end: 20160720
  6. DALACINE [Suspect]
     Active Substance: CLINDAMYCIN HYDROCHLORIDE
     Dosage: 600 MG, 3X/DAY
     Route: 048
     Dates: start: 20160719, end: 20160720
  7. XANAX [Concomitant]
     Active Substance: ALPRAZOLAM
  8. LOVENOX [Concomitant]
     Active Substance: ENOXAPARIN SODIUM
  9. ZOLOFT [Concomitant]
     Active Substance: SERTRALINE HYDROCHLORIDE

REACTIONS (1)
  - Acute generalised exanthematous pustulosis [Recovered/Resolved]

NARRATIVE: CASE EVENT DATE: 20160720
